FAERS Safety Report 12099038 (Version 2)
Quarter: 2016Q1

REPORT INFORMATION
  Report Type: Report from Study
  Country: IL (occurrence: IL)
  Receive Date: 20160222
  Receipt Date: 20160331
  Transmission Date: 20160526
  Serious: Yes (Hospitalization)
  Sender: FDA-Public Use
  Company Number: PHHO2016IL002662

PATIENT
  Age: 22 Year
  Sex: Female
  Weight: 51 kg

DRUGS (3)
  1. BLINDED PLACEBO [Suspect]
     Active Substance: INVESTIGATIONAL PRODUCT
     Indication: PYREXIA
     Dosage: CODE NOT BROKEN
     Route: 058
     Dates: start: 20141026
  2. BLINDED ACZ885 [Suspect]
     Active Substance: CANAKINUMAB
     Indication: PYREXIA
     Dosage: CODE NOT BROKEN
     Route: 058
     Dates: start: 20141026
  3. BLINDED NO TREATMENT RECEIVED [Suspect]
     Active Substance: INVESTIGATIONAL PRODUCT
     Indication: PYREXIA
     Dosage: CODE NOT BROKEN
     Route: 058
     Dates: start: 20141026

REACTIONS (1)
  - Acute sinusitis [Recovered/Resolved]

NARRATIVE: CASE EVENT DATE: 20160207
